FAERS Safety Report 4817944-9 (Version None)
Quarter: 2005Q4

REPORT INFORMATION
  Report Type: 
  Country: None (occurrence: None)
  Receive Date: 20051102
  Receipt Date: 20051026
  Transmission Date: 20060501
  Serious: Yes (Other)
  Sender: FDA-Public Use
  Company Number: US-BRISTOL-MYERS SQUIBB COMPANY-13160049

PATIENT

DRUGS (1)
  1. ERBITUX [Suspect]
     Dosage: FIRST COURSE.
     Route: 042
     Dates: start: 20051001, end: 20051001

REACTIONS (2)
  - CYANOSIS [None]
  - INFUSION RELATED REACTION [None]
